FAERS Safety Report 20335120 (Version 1)
Quarter: 2022Q1

REPORT INFORMATION
  Report Type: Spontaneous
  Country: US (occurrence: US)
  Receive Date: 20220114
  Receipt Date: 20220114
  Transmission Date: 20220423
  Serious: Yes (Other)
  Sender: FDA-Public Use
  Company Number: US-PFIZER INC-202101886127

PATIENT
  Age: 67 Year

DRUGS (1)
  1. MYCOBUTIN [Suspect]
     Active Substance: RIFABUTIN
     Dosage: 150 MG, 2X/DAY (SIG: TAKE 2 CAPSULES BY MOUTH DAILY FOR 14 DAYS)
     Route: 048

REACTIONS (12)
  - Gastric ulcer helicobacter [Unknown]
  - Helicobacter infection [Unknown]
  - Idiopathic interstitial pneumonia [Unknown]
  - Weight decreased [Unknown]
  - Insomnia [Unknown]
  - Abnormal faeces [Unknown]
  - Obesity [Unknown]
  - Chronic obstructive pulmonary disease [Unknown]
  - Sleep apnoea syndrome [Unknown]
  - Chronic gastritis [Unknown]
  - Bursitis [Unknown]
  - Osteoarthritis [Unknown]
